FAERS Safety Report 8254228-3 (Version None)
Quarter: 2012Q2

REPORT INFORMATION
  Report Type: 
  Country: None (occurrence: None)
  Receive Date: 20120402
  Receipt Date: 20120321
  Transmission Date: 20120825
  Serious: Yes (Hospitalization)
  Sender: FDA-Public Use
  Company Number: US-AMGEN-USASP2012018315

PATIENT
  Age: 73 Year
  Sex: Female

DRUGS (2)
  1. TREXALL [Concomitant]
     Dosage: 9 MG, UNK
     Dates: start: 20110101
  2. ENBREL [Suspect]
     Indication: RHEUMATOID ARTHRITIS
     Dosage: 50 MG, QWK
     Dates: start: 20111231

REACTIONS (4)
  - DYSURIA [None]
  - PYREXIA [None]
  - POLLAKIURIA [None]
  - KIDNEY INFECTION [None]
